FAERS Safety Report 4651557-7 (Version None)
Quarter: 2005Q2

REPORT INFORMATION
  Report Type: 
  Country: None (occurrence: None)
  Receive Date: 20050503
  Receipt Date: 20050427
  Transmission Date: 20051028
  Serious: Yes (Hospitalization)
  Sender: FDA-Public Use
  Company Number: US-MERCK-0504USA04718

PATIENT
  Age: 13 Year
  Sex: Female

DRUGS (18)
  1. CANCIDAS [Suspect]
     Indication: ORAL CANDIDIASIS
     Route: 041
     Dates: start: 20050426, end: 20050426
  2. DOCUSATE SODIUM [Concomitant]
     Route: 065
  3. ZANTAC [Concomitant]
     Route: 065
  4. [THERAPY UNSPECIFIED] [Concomitant]
     Route: 065
  5. [THERAPY UNSPECIFIED] [Concomitant]
     Route: 065
  6. ONDANSETRON [Concomitant]
     Route: 065
  7. SENNA [Concomitant]
     Route: 065
  8. GENTAMICIN [Concomitant]
     Route: 065
  9. VANCOMYCIN [Concomitant]
     Route: 065
  10. GABAPENTIN [Concomitant]
     Route: 065
  11. UROKINASE [Concomitant]
     Route: 065
  12. CHLORHEXIDINE GLUCONATE [Concomitant]
     Route: 065
  13. TYLENOL (CAPLET) [Concomitant]
     Route: 065
  14. ALUMINUM HYDROXIDE AND MAGNESIUM TRISILICATE [Concomitant]
     Route: 065
  15. LORAZEPAM [Concomitant]
     Route: 065
  16. DIPHENHYDRAMINE HYDROCHLORIDE [Concomitant]
     Route: 065
  17. MIDAZOLAM [Concomitant]
     Route: 065
  18. ANTIMICROBIAL (UNSPECIFIED) [Concomitant]
     Route: 065

REACTIONS (1)
  - FORMICATION [None]
